FAERS Safety Report 8333742-6 (Version None)
Quarter: 2012Q2

REPORT INFORMATION
  Report Type: 
  Country: None (occurrence: None)
  Receive Date: 20120503
  Receipt Date: 20120503
  Transmission Date: 20120825
  Serious: Yes (Other)
  Sender: FDA-Public Use
  Company Number: None

PATIENT
  Age: 60 Year
  Sex: Male
  Weight: 120.2 kg

DRUGS (1)
  1. VIAGRA [Suspect]
     Indication: ERECTILE DYSFUNCTION
     Dosage: |STRENGTH: 100MG||FREQ: AS NEEDED||ROUTE: ORAL|
     Route: 048
     Dates: start: 20000101, end: 20110101

REACTIONS (4)
  - HOT FLUSH [None]
  - DYSPHAGIA [None]
  - HEADACHE [None]
  - APHAGIA [None]
